FAERS Safety Report 14639769 (Version 1)
Quarter: 2018Q1

REPORT INFORMATION
  Report Type: Report from Study
  Country: US (occurrence: US)
  Receive Date: 20180315
  Receipt Date: 20180315
  Transmission Date: 20180509
  Serious: Yes (Hospitalization, Other)
  Sender: FDA-Public Use
  Company Number: US-ROCHE-2085821

PATIENT
  Sex: Female

DRUGS (1)
  1. OCREVUS [Suspect]
     Active Substance: OCRELIZUMAB
     Indication: PRODUCT USED FOR UNKNOWN INDICATION
     Dosage: SECOND INFUSION ON 10/NOV/2017
     Route: 065

REACTIONS (4)
  - Eye infection [Unknown]
  - Nephrolithiasis [Unknown]
  - Fall [Unknown]
  - Peroneal nerve palsy [Unknown]
